FAERS Safety Report 8838158 (Version 1)
Quarter: 2012Q4

REPORT INFORMATION
  Report Type: 
  Country: US (occurrence: US)
  Receive Date: 20121012
  Receipt Date: 20121012
  Transmission Date: 20130627
  Serious: No
  Sender: FDA-Public Use
  Company Number: US-PFIZER INC-2012250651

PATIENT
  Age: 65 Year
  Sex: Female
  Weight: 76.64 kg

DRUGS (3)
  1. BOSULIF [Suspect]
     Indication: ACUTE PROMYELOCYTIC LEUKAEMIA
     Dosage: 500 mg, daily
     Dates: start: 20121004
  2. TENORMIN [Concomitant]
     Indication: HYPERTENSION
     Dosage: 50 mg, daily
  3. CRESTOR [Concomitant]
     Indication: BLOOD CHOLESTEROL INCREASED
     Dosage: 20 mg, daily at night

REACTIONS (2)
  - Diarrhoea [Recovering/Resolving]
  - Fatigue [Not Recovered/Not Resolved]
